FAERS Safety Report 6469572-X (Version None)
Quarter: 2009Q4

REPORT INFORMATION
  Report Type: 
  Country: None (occurrence: None)
  Receive Date: 20091202
  Receipt Date: 20091202
  Transmission Date: 20100525
  Serious: Yes (Hospitalization)
  Sender: FDA-Public Use
  Company Number: None

PATIENT
  Sex: Female
  Weight: 53 kg

DRUGS (2)
  1. XELODA [Suspect]
     Dosage: 9100 MG
  2. ELOXATIN [Suspect]
     Dosage: 78 MG

REACTIONS (2)
  - CHILLS [None]
  - PYREXIA [None]
